FAERS Safety Report 8023458 (Version 3)
Quarter: 2014Q3

REPORT INFORMATION
  Report Type: Spontaneous
  Country: US (occurrence: US)
  Receive Date: 20110706
  Receipt Date: 20140721
  Transmission Date: 20150326
  Serious: Yes (Other)
  Sender: FDA-Public Use
  Company Number: US-ROCHE-785908

PATIENT
  Sex: Female
  Weight: 79.9 kg

DRUGS (1)
  1. ACCUTANE [Suspect]
     Active Substance: ISOTRETINOIN
     Indication: ACNE
     Dosage: DOSAGE FORM: PILLS
     Route: 048
     Dates: start: 20011219, end: 200203

REACTIONS (7)
  - Anal fissure [Unknown]
  - Crohn^s disease [Unknown]
  - Colitis ulcerative [Unknown]
  - Depression [Unknown]
  - Anxiety [Unknown]
  - Inflammatory bowel disease [Unknown]
  - Lip dry [Unknown]

NARRATIVE: CASE EVENT DATE: 2004
